FAERS Safety Report 25395503 (Version 1)
Quarter: 2025Q2

REPORT INFORMATION
  Report Type: Spontaneous
  Country: ES (occurrence: ES)
  Receive Date: 20250604
  Receipt Date: 20250604
  Transmission Date: 20250717
  Serious: Yes (Death, Hospitalization, Other)
  Sender: PFIZER
  Company Number: None

PATIENT
  Age: 66 Year
  Sex: Male

DRUGS (6)
  1. LINEZOLID [Suspect]
     Active Substance: LINEZOLID
     Indication: Pneumonia
     Dosage: 1200 MG, 1X/DAY
     Route: 042
     Dates: start: 20250120, end: 20250124
  2. CEFAZOLIN [Suspect]
     Active Substance: CEFAZOLIN
     Indication: Pneumonia
     Dosage: 6 G, 1X/DAY
     Route: 042
     Dates: start: 20250127, end: 20250131
  3. CIPROFLOXACIN [Suspect]
     Active Substance: CIPROFLOXACIN
     Indication: Pneumonia
     Dosage: 1200 MG, 1X/DAY
     Route: 042
     Dates: start: 20250127, end: 20250131
  4. CEFAZOLIN [Concomitant]
     Active Substance: CEFAZOLIN
     Indication: Pneumonia
     Dosage: 4 G, 1X/DAY
     Route: 042
     Dates: start: 20250116, end: 20250126
  5. ANIDULAFUNGIN [Concomitant]
     Active Substance: ANIDULAFUNGIN
     Indication: Pneumonia
     Dosage: 1 G, 1X/DAY
     Route: 042
     Dates: start: 20250122, end: 20250131
  6. ISAVUCONAZOLE [Concomitant]
     Active Substance: ISAVUCONAZOLE
     Indication: Pneumonia
     Dosage: 1 G, 1X/DAY
     Route: 042
     Dates: start: 20250121, end: 20250209

REACTIONS (3)
  - Pancytopenia [Fatal]
  - Septic shock [Fatal]
  - Off label use [Unknown]

NARRATIVE: CASE EVENT DATE: 20250120
